FAERS Safety Report 21335901 (Version 5)
Quarter: 2023Q1

REPORT INFORMATION
  Report Type: Other
  Country: CA (occurrence: None)
  Receive Date: 20220915
  Receipt Date: 20230316
  Transmission Date: 20230418
  Serious: Yes (Other)
  Sender: FDA-Public Use
  Company Number: CA-ROCHE-3176434

PATIENT
  Sex: Female

DRUGS (1)
  1. ENSPRYNG [Suspect]
     Active Substance: SATRALIZUMAB-MWGE
     Indication: Neuromyelitis optica spectrum disorder
     Dosage: 120 MG AT WEEKS 0, 2, AND 4 THEN EVERY 4 WEEKS.
     Route: 058
     Dates: start: 20210628

REACTIONS (7)
  - Nasopharyngitis [Unknown]
  - Lower respiratory tract infection [Unknown]
  - Neuromyelitis optica spectrum disorder [Unknown]
  - Fall [Unknown]
  - Influenza [Recovered/Resolved]
  - COVID-19 [Unknown]
  - Vascular device infection [Recovering/Resolving]
